FAERS Safety Report 11806072 (Version 2)
Quarter: 2015Q4

REPORT INFORMATION
  Report Type: Report from Study
  Country: PK (occurrence: PK)
  Receive Date: 20151207
  Receipt Date: 20151210
  Transmission Date: 20160305
  Serious: Yes (Death)
  Sender: FDA-Public Use
  Company Number: PHHY2015PK159179

PATIENT
  Sex: Female

DRUGS (1)
  1. ACLASTA [Suspect]
     Active Substance: ZOLEDRONIC ACID
     Indication: OSTEOPOROSIS
     Dosage: 5MG/100ML Q12MO
     Route: 042
     Dates: start: 20140813

REACTIONS (8)
  - Crepitations [Fatal]
  - Palpitations [Fatal]
  - Malaise [Fatal]
  - Fatigue [Fatal]
  - Dyspnoea [Fatal]
  - Pleural effusion [Fatal]
  - Oedema peripheral [Unknown]
  - Wheezing [Fatal]
